FAERS Safety Report 24416341 (Version 1)
Quarter: 2024Q4

REPORT INFORMATION
  Report Type: Spontaneous
  Country: US (occurrence: US)
  Receive Date: 20241009
  Receipt Date: 20241009
  Transmission Date: 20250115
  Serious: Yes (Other)
  Sender: PFIZER
  Company Number: US-PFIZER INC-202400270457

PATIENT
  Age: 64 Year
  Sex: Male

DRUGS (2)
  1. LOMOTIL [Suspect]
     Active Substance: ATROPINE SULFATE\DIPHENOXYLATE HYDROCHLORIDE
     Dosage: 3 DF, DAILY
     Dates: start: 2019
  2. LOMOTIL [Suspect]
     Active Substance: ATROPINE SULFATE\DIPHENOXYLATE HYDROCHLORIDE
     Dosage: UNK UNK, DAILY (5 OR 6 SIX DAILY NOT THE 8)

REACTIONS (3)
  - Hepatic function abnormal [Unknown]
  - Nausea [Unknown]
  - Drug ineffective [Unknown]
